FAERS Safety Report 6161858-1 (Version None)
Quarter: 2009Q2

REPORT INFORMATION
  Report Type: 
  Country: None (occurrence: None)
  Receive Date: 20090421
  Receipt Date: 20090415
  Transmission Date: 20091009
  Serious: Yes (Other)
  Sender: FDA-Public Use
  Company Number: A0778733A

PATIENT
  Age: 37 Year
  Sex: Female

DRUGS (2)
  1. LAMICTAL [Suspect]
     Indication: EPILEPSY
     Dosage: 200MG TWICE PER DAY
     Route: 048
     Dates: start: 20090408, end: 20090409
  2. TEGRETOL [Concomitant]

REACTIONS (4)
  - ANXIETY [None]
  - CONVULSION [None]
  - PHARYNGEAL OEDEMA [None]
  - THROAT TIGHTNESS [None]
